FAERS Safety Report 13641723 (Version 2)
Quarter: 2017Q3

REPORT INFORMATION
  Report Type: Report from Study
  Country: US (occurrence: US)
  Receive Date: 20170612
  Receipt Date: 20170823
  Transmission Date: 20171127
  Serious: Yes (Other)
  Sender: FDA-Public Use
  Company Number: US-ROCHE-1942322

PATIENT
  Age: 47 Year
  Sex: Female
  Weight: 70.37 kg

DRUGS (7)
  1. ACTEMRA [Suspect]
     Active Substance: TOCILIZUMAB
     Indication: SCLERODERMA
     Route: 058
     Dates: start: 201608, end: 201705
  2. MIRAPEX [Concomitant]
     Active Substance: PRAMIPEXOLE DIHYDROCHLORIDE
     Dosage: ONGOING YES
     Route: 065
  3. ACTEMRA [Suspect]
     Active Substance: TOCILIZUMAB
     Route: 058
     Dates: start: 201703
  4. RITUXAN [Suspect]
     Active Substance: RITUXIMAB
     Indication: SCLERODERMA
     Route: 042
     Dates: start: 201608, end: 201608
  5. PHENERGAN [Concomitant]
     Active Substance: PROMETHAZINE HYDROCHLORIDE
     Dosage: ONGOING YES
     Route: 065
  6. LEVOTHYROXINE. [Concomitant]
     Active Substance: LEVOTHYROXINE
     Dosage: ONGOING YES
     Route: 065
  7. ZOFRAN [Concomitant]
     Active Substance: ONDANSETRON HYDROCHLORIDE
     Dosage: ONGOING YES
     Route: 065

REACTIONS (11)
  - Injection site swelling [Recovered/Resolved with Sequelae]
  - Injection site laceration [Recovered/Resolved]
  - White blood cell count decreased [Recovered/Resolved]
  - Off label use [Unknown]
  - Peripheral swelling [Recovered/Resolved]
  - Injection site erythema [Recovered/Resolved with Sequelae]
  - Injection site irritation [Unknown]
  - Platelet count decreased [Recovered/Resolved]
  - Intentional product use issue [Unknown]
  - Injection site discolouration [Recovered/Resolved with Sequelae]
  - Pain [Recovered/Resolved]

NARRATIVE: CASE EVENT DATE: 201608
